FAERS Safety Report 7228870-2 (Version None)
Quarter: 2011Q1

REPORT INFORMATION
  Report Type: 
  Country: None (occurrence: None)
  Receive Date: 20110117
  Receipt Date: 20110106
  Transmission Date: 20110831
  Serious: Yes (Other)
  Sender: FDA-Public Use
  Company Number: CA-JNJFOC-20110102049

PATIENT
  Sex: Male
  Weight: 81 kg

DRUGS (5)
  1. HYDROMORPHONE CONTIN [Concomitant]
  2. CELEXA [Concomitant]
  3. DEXAMETHASONE [Concomitant]
  4. REMICADE [Suspect]
     Indication: PRODUCT USED FOR UNKNOWN INDICATION
     Route: 042
  5. PARIET [Concomitant]

REACTIONS (1)
  - BRAIN NEOPLASM [None]
